FAERS Safety Report 9422343 (Version 2)
Quarter: 2013Q3

REPORT INFORMATION
  Report Type: Report from Study
  Country: FR (occurrence: FR)
  Receive Date: 20130726
  Receipt Date: 20130801
  Transmission Date: 20140515
  Serious: Yes (Disabling)
  Sender: FDA-Public Use
  Company Number: FR-TEVA-420585ISR

PATIENT
  Age: 67 Year
  Sex: Female
  Weight: 152 kg

DRUGS (1)
  1. EFFENTORA [Suspect]
     Indication: PAIN
     Dosage: TITRATION 100 MCG, THEN 200 MCG AND THEN 200+100 MCG
     Route: 002
     Dates: start: 20130703, end: 20130716

REACTIONS (3)
  - Eyelid oedema [Not Recovered/Not Resolved]
  - Angioedema [Not Recovered/Not Resolved]
  - Headache [Not Recovered/Not Resolved]
